FAERS Safety Report 10080627 (Version 2)
Quarter: 2014Q2

REPORT INFORMATION
  Report Type: Spontaneous
  Country: CA (occurrence: CA)
  Receive Date: 20140416
  Receipt Date: 20140416
  Transmission Date: 20141212
  Serious: Yes (Other)
  Sender: FDA-Public Use
  Company Number: CA-BEH-2013034726

PATIENT
  Age: 75 Year
  Sex: Male

DRUGS (1)
  1. PRIVIGEN [Suspect]
     Indication: IMMUNODEFICIENCY
     Dosage: 20 GM VIAL - 160 OF 200 MLS INFUSED.
     Route: 042
     Dates: start: 20130124, end: 20130124

REACTIONS (10)
  - Anaphylactic reaction [Recovered/Resolved]
  - Anaphylactoid reaction [Recovered/Resolved]
  - Dyspnoea [Recovered/Resolved]
  - Hypoxia [Recovered/Resolved]
  - Chills [Recovered/Resolved]
  - Rash [Recovered/Resolved]
  - Back pain [Recovered/Resolved]
  - Arthralgia [Recovered/Resolved]
  - Anxiety [Recovered/Resolved]
  - Blood pressure increased [Recovered/Resolved]
